FAERS Safety Report 9068216 (Version 1)
Quarter: 2013Q1

REPORT INFORMATION
  Report Type: Spontaneous
  Country: GB (occurrence: GB)
  Receive Date: 20130128
  Receipt Date: 20130128
  Transmission Date: 20140127
  Serious: Yes (Other)
  Sender: FDA-Public Use
  Company Number: GB-ASTRAZENECA-2013SE04408

PATIENT
  Age: 53 Year
  Sex: Female

DRUGS (11)
  1. OMEPRAZOLE [Suspect]
     Indication: PROPHYLAXIS AGAINST GASTROINTESTINAL ULCER
     Route: 048
  2. CO-CODAMOL [Concomitant]
  3. DICYCLOVERINE [Concomitant]
  4. DOMPERIDONE [Concomitant]
  5. FEXOFENADINE [Concomitant]
  6. FUROSEMIDE [Concomitant]
  7. NAPROXEN [Concomitant]
  8. PEPPERMINT OIL [Concomitant]
  9. PIZOTIFEN [Concomitant]
  10. TIOTROPIUM [Concomitant]
  11. ZOLMITRIPTAN [Concomitant]

REACTIONS (1)
  - Breast mass [Recovered/Resolved]
